FAERS Safety Report 4461486-X (Version None)
Quarter: 2004Q3

REPORT INFORMATION
  Report Type: 
  Country: None (occurrence: None)
  Receive Date: 20040916
  Receipt Date: 20040901
  Transmission Date: 20050211
  Serious: Yes (Death)
  Sender: FDA-Public Use
  Company Number: THYM-10251

PATIENT
  Age: 48 Year
  Sex: Male
  Weight: 98.5 kg

DRUGS (10)
  1. THYMOGLOBULIN [Suspect]
     Indication: PROPHYLAXIS AGAINST TRANSPLANT REJECTION
     Dosage: 150 MG QD IV
     Route: 042
     Dates: start: 20040721, end: 20040721
  2. THYMOGLOBULIN [Suspect]
  3. THYMOGLOBULIN [Suspect]
  4. APROTONIN [Concomitant]
  5. VANCOMYCIN [Concomitant]
  6. FENTANYL [Concomitant]
  7. LASIX [Concomitant]
  8. UNSPECIFIED ANESTHETICS [Concomitant]
  9. BENADRYL [Concomitant]
  10. PEPCID [Concomitant]

REACTIONS (14)
  - ANAPHYLACTIC REACTION [None]
  - BLOOD PRESSURE SYSTOLIC DECREASED [None]
  - ENDOTOXIC SHOCK [None]
  - ERYTHEMA [None]
  - FLUSHING [None]
  - HEPATIC FAILURE [None]
  - HYPOTENSION [None]
  - LUNG INFECTION PSEUDOMONAL [None]
  - MULTI-ORGAN FAILURE [None]
  - PHARMACEUTICAL PRODUCT COMPLAINT [None]
  - PNEUMONIA NECROTISING [None]
  - RENAL FAILURE [None]
  - RESPIRATORY FAILURE [None]
  - VASCULAR RESISTANCE SYSTEMIC DECREASED [None]
